FAERS Safety Report 5310180-1 (Version None)
Quarter: 2007Q2

REPORT INFORMATION
  Report Type: 
  Country: None (occurrence: None)
  Receive Date: 20070423
  Receipt Date: 20070412
  Transmission Date: 20071010
  Serious: Yes (Hospitalization, Other)
  Sender: FDA-Public Use
  Company Number: E2020-00889-SPO-JP

PATIENT
  Age: 87 Year
  Sex: Male

DRUGS (3)
  1. ARICEPT [Suspect]
     Indication: DEMENTIA ALZHEIMER'S TYPE
     Dosage: 3 MG, 1 IN 1, ORAL
     Route: 048
     Dates: start: 20061108, end: 20061128
  2. MYSLEE (ZOLIPIDEM TARTRATE) [Concomitant]
  3. TAMSULOSIN HCL [Concomitant]

REACTIONS (2)
  - PLEURAL EFFUSION [None]
  - SINUS BRADYCARDIA [None]
